FAERS Safety Report 18560560 (Version 1)
Quarter: 2020Q4

REPORT INFORMATION
  Report Type: Spontaneous
  Country: US (occurrence: US)
  Receive Date: 20201130
  Receipt Date: 20201130
  Transmission Date: 20210114
  Serious: Yes (Other)
  Sender: FDA-Public Use
  Company Number: US-PURDUE-USA-2020-0166048

PATIENT
  Sex: Female

DRUGS (13)
  1. HYDROMORPHONE HCL (SIMILAR TO 19-892) [Suspect]
     Active Substance: HYDROMORPHONE HYDROCHLORIDE
     Indication: PRODUCT USED FOR UNKNOWN INDICATION
     Route: 048
  2. OXYCODONE HCL TABLETS (RHODES 91-490) [Suspect]
     Active Substance: OXYCODONE HYDROCHLORIDE
     Indication: PRODUCT USED FOR UNKNOWN INDICATION
     Route: 048
  3. OXYIR [Suspect]
     Active Substance: OXYCODONE HYDROCHLORIDE
     Indication: PRODUCT USED FOR UNKNOWN INDICATION
     Route: 065
  4. MORPHINE SULFATE (SIMILAR TO NDA 19-516) [Suspect]
     Active Substance: MORPHINE SULFATE
     Indication: PRODUCT USED FOR UNKNOWN INDICATION
     Route: 048
  5. HYDROCODONE BITARTRATE/ACETAMINOPHEN [Suspect]
     Active Substance: ACETAMINOPHEN\HYDROCODONE BITARTRATE
     Indication: PRODUCT USED FOR UNKNOWN INDICATION
     Route: 048
  6. OXYCODONE HCL CR TABLETS (SIMILAR TO NDA 22-272) [Suspect]
     Active Substance: OXYCODONE HYDROCHLORIDE
     Indication: PRODUCT USED FOR UNKNOWN INDICATION
     Route: 048
  7. METHADONE [Suspect]
     Active Substance: METHADONE HYDROCHLORIDE
     Indication: PRODUCT USED FOR UNKNOWN INDICATION
     Route: 065
  8. OXYCONTIN [Suspect]
     Active Substance: OXYCODONE HYDROCHLORIDE
     Indication: PRODUCT USED FOR UNKNOWN INDICATION
     Route: 048
  9. MS CONTIN [Suspect]
     Active Substance: MORPHINE SULFATE
     Indication: PRODUCT USED FOR UNKNOWN INDICATION
     Route: 048
  10. DILAUDID [Suspect]
     Active Substance: HYDROMORPHONE HYDROCHLORIDE
     Indication: PRODUCT USED FOR UNKNOWN INDICATION
     Route: 048
  11. TRAMADOL. [Suspect]
     Active Substance: TRAMADOL
     Indication: PRODUCT USED FOR UNKNOWN INDICATION
     Route: 065
  12. OXYCODONE/ ACETAMINOPHEN TABLETS [Suspect]
     Active Substance: ACETAMINOPHEN\OXYCODONE HYDROCHLORIDE
     Indication: PRODUCT USED FOR UNKNOWN INDICATION
     Route: 048
  13. OXYFAST [Suspect]
     Active Substance: OXYCODONE
     Indication: PRODUCT USED FOR UNKNOWN INDICATION
     Route: 065

REACTIONS (50)
  - Immunosuppression [Unknown]
  - Neoplasm malignant [Unknown]
  - Vomiting [Unknown]
  - Dizziness [Unknown]
  - Pain [Unknown]
  - Maternal exposure during pregnancy [Unknown]
  - Constipation [Unknown]
  - Dry mouth [Unknown]
  - Blood oestrogen decreased [Unknown]
  - Myalgia [Unknown]
  - Mydriasis [Unknown]
  - Anxiety [Unknown]
  - Euphoric mood [Unknown]
  - Overdose [Unknown]
  - Drug dependence [Unknown]
  - Autoimmune disorder [Unknown]
  - Cerebral disorder [Unknown]
  - Tooth loss [Unknown]
  - Irritability [Unknown]
  - Lung disorder [Unknown]
  - Diabetes mellitus [Unknown]
  - Major depression [Unknown]
  - Confusional state [Unknown]
  - Pruritus [Unknown]
  - Injury [Unknown]
  - Neurotransmitter level altered [Unknown]
  - Stress [Unknown]
  - Toxicity to various agents [Unknown]
  - Schizophrenia [Unknown]
  - Progesterone decreased [Unknown]
  - Restlessness [Unknown]
  - Bone pain [Unknown]
  - Motor neurone disease [Unknown]
  - Withdrawal syndrome [Unknown]
  - Nausea [Unknown]
  - Somnolence [Unknown]
  - Blood testosterone decreased [Unknown]
  - Feeling jittery [Unknown]
  - Norepinephrine abnormal [Unknown]
  - Hypertension [Unknown]
  - Back pain [Unknown]
  - Atrial fibrillation [Unknown]
  - Hyperaesthesia [Unknown]
  - Depression [Unknown]
  - Hyperhidrosis [Unknown]
  - Chills [Unknown]
  - Muscle spasms [Unknown]
  - Diarrhoea [Unknown]
  - Insomnia [Unknown]
  - Mood swings [Unknown]
